FAERS Safety Report 6244243-3 (Version None)
Quarter: 2009Q2

REPORT INFORMATION
  Report Type: 
  Country: None (occurrence: None)
  Receive Date: 20090623
  Receipt Date: 20090623
  Transmission Date: 20091009
  Serious: Yes (Other)
  Sender: FDA-Public Use
  Company Number: None

PATIENT
  Age: 70 Year
  Sex: Female

DRUGS (1)
  1. NUPERCAINAL (NCH) (CINCHOCAINE) UNKNOWN [Suspect]

REACTIONS (1)
  - HAEMORRHOID OPERATION [None]
